FAERS Safety Report 7446872-8 (Version None)
Quarter: 2011Q2

REPORT INFORMATION
  Report Type: 
  Country: None (occurrence: None)
  Receive Date: 20110429
  Receipt Date: 20110421
  Transmission Date: 20111010
  Serious: Yes (Hospitalization)
  Sender: FDA-Public Use
  Company Number: FR-BRISTOL-MYERS SQUIBB COMPANY-15696123

PATIENT
  Age: 86 Year
  Sex: Male

DRUGS (7)
  1. TAREG [Concomitant]
  2. COUMADIN [Suspect]
     Indication: ATRIAL FIBRILLATION
     Dosage: ONE INTAKE
     Route: 048
     Dates: start: 20101215, end: 20110121
  3. IKOREL [Concomitant]
  4. AMLODIPINE [Concomitant]
     Dates: end: 20110209
  5. PINAVERIUM BROMIDE [Concomitant]
  6. CARDENSIEL [Concomitant]
     Dosage: 1 DF = 1.25 UNITS NOS
  7. TAHOR [Concomitant]

REACTIONS (1)
  - HENOCH-SCHONLEIN PURPURA [None]
